FAERS Safety Report 6269841-2 (Version None)
Quarter: 2009Q3

REPORT INFORMATION
  Report Type: 
  Country: None (occurrence: None)
  Receive Date: 20090716
  Receipt Date: 20070710
  Transmission Date: 20100115
  Serious: Yes (Other)
  Sender: FDA-Public Use
  Company Number: US-ASTRAZENECA-2006UW25388

PATIENT
  Age: 45 Year
  Sex: Female
  Weight: 111.8 kg

DRUGS (40)
  1. SEROQUEL [Suspect]
     Indication: ANXIETY
     Dosage: 25-300 MG
     Route: 048
     Dates: start: 20030814
  2. SEROQUEL [Suspect]
     Indication: INSOMNIA
     Dosage: 25-300 MG
     Route: 048
     Dates: start: 20030814
  3. SEROQUEL [Suspect]
     Indication: DEPRESSION
     Dosage: 25-300 MG
     Route: 048
     Dates: start: 20030814
  4. SEROQUEL [Suspect]
     Route: 048
     Dates: start: 20050707, end: 20060321
  5. SEROQUEL [Suspect]
     Route: 048
     Dates: start: 20050707, end: 20060321
  6. SEROQUEL [Suspect]
     Route: 048
     Dates: start: 20050707, end: 20060321
  7. GLYCOLAX [Concomitant]
  8. ADVAIR DISKUS 100/50 [Concomitant]
  9. ALTACE [Concomitant]
  10. LORATADINE [Concomitant]
  11. METFORMIN HCL [Concomitant]
  12. POTASSIUM CHLORIDE [Concomitant]
  13. FUROSEMIDE [Concomitant]
  14. SKELAXIN [Concomitant]
  15. ZOLOFT [Concomitant]
  16. AZITHROMYCIN [Concomitant]
  17. ALBUTEROL [Concomitant]
  18. FLUTICASONE [Concomitant]
  19. CYCLOBENZAPRINE [Concomitant]
  20. HYDROCODONE [Concomitant]
  21. NAPROXEN [Concomitant]
  22. TOPAMAX [Concomitant]
  23. METHYLPREDNISOLONE [Concomitant]
  24. GABAPENTIN [Concomitant]
  25. LYRICA [Concomitant]
  26. SIMVASTATIN [Concomitant]
  27. TRAMADOL HCL [Concomitant]
  28. ZELNORM [Concomitant]
  29. PIROXICAM [Concomitant]
  30. XANAX [Concomitant]
  31. TOPROL-XL [Concomitant]
  32. LIPITOR [Concomitant]
  33. DICYCLONINE HCL [Concomitant]
  34. WARFARIN SODIUM [Concomitant]
  35. OXYCODONE [Concomitant]
  36. PEPCID [Concomitant]
  37. KLONOPIN [Concomitant]
  38. ROXICET [Concomitant]
  39. BISACODYL [Concomitant]
  40. MILK OF MAGNESIA TAB [Concomitant]

REACTIONS (2)
  - DIABETES MELLITUS [None]
  - DIABETIC NEUROPATHY [None]
